FAERS Safety Report 23365076 (Version 3)
Quarter: 2024Q1

REPORT INFORMATION
  Report Type: Spontaneous
  Country: US (occurrence: US)
  Receive Date: 20240104
  Receipt Date: 20240216
  Transmission Date: 20240410
  Serious: Yes (Other)
  Sender: FDA-Public Use
  Company Number: US-ALK-ABELLO A/S-2023AA004745

PATIENT

DRUGS (6)
  1. QUERCUS ALBA POLLEN [Suspect]
     Active Substance: QUERCUS ALBA POLLEN
     Indication: Rhinitis allergic
     Route: 058
  2. DERMATOPHAGOIDES FARINAE [Suspect]
     Active Substance: DERMATOPHAGOIDES FARINAE
     Indication: Rhinitis allergic
     Route: 058
  3. DERMATOPHAGOIDES PTERONYSSINUS [Suspect]
     Active Substance: DERMATOPHAGOIDES PTERONYSSINUS
     Indication: Rhinitis allergic
     Route: 065
  4. FELIS CATUS HAIR [Suspect]
     Active Substance: FELIS CATUS HAIR
     Indication: Rhinitis allergic
     Route: 058
  5. STERILE DILUENT FOR ALLERGENIC EXTRACT NOS [Suspect]
     Active Substance: ALBUMIN HUMAN OR GLYCERIN OR PHENOL
     Indication: Rhinitis allergic
     Route: 058
  6. ALBUMIN HUMAN [Suspect]
     Active Substance: ALBUMIN HUMAN
     Indication: Rhinitis allergic

REACTIONS (5)
  - Urticaria [Recovered/Resolved]
  - Rhinorrhoea [Recovered/Resolved]
  - Eye pruritus [Recovered/Resolved]
  - Wheezing [Recovered/Resolved]
  - Chest discomfort [Recovered/Resolved]

NARRATIVE: CASE EVENT DATE: 20231031
